FAERS Safety Report 6769442-3 (Version None)
Quarter: 2010Q2

REPORT INFORMATION
  Report Type: 
  Country: None (occurrence: None)
  Receive Date: 20100615
  Receipt Date: 20100609
  Transmission Date: 20101027
  Serious: Yes (Other)
  Sender: FDA-Public Use
  Company Number: US-SANOFI-AVENTIS-2010SA020602

PATIENT
  Age: 82 Year
  Sex: Female
  Weight: 67.1 kg

DRUGS (2)
  1. MULTAQ [Suspect]
     Route: 048
     Dates: start: 20100227
  2. ALL OTHER THERAPEUTIC PRODUCTS [Concomitant]

REACTIONS (3)
  - BLOOD PRESSURE DECREASED [None]
  - DEVICE MALFUNCTION [None]
  - THERAPEUTIC RESPONSE UNEXPECTED [None]
